FAERS Safety Report 21355895 (Version 1)
Quarter: 2022Q3

REPORT INFORMATION
  Report Type: Spontaneous
  Country: US (occurrence: US)
  Receive Date: 20220920
  Receipt Date: 20220920
  Transmission Date: 20221027
  Serious: Yes (Death, Other)
  Sender: FDA-Public Use
  Company Number: US-INSUD PHARMA-2209US03645

PATIENT

DRUGS (2)
  1. TESTOSTERONE [Suspect]
     Active Substance: TESTOSTERONE
     Indication: Transgender hormonal therapy
     Dosage: UNK
     Route: 061
  2. TESTOSTERONE [Suspect]
     Active Substance: TESTOSTERONE
     Dosage: UNK
     Route: 030

REACTIONS (12)
  - Cervix carcinoma stage IV [Fatal]
  - Squamous cell carcinoma of the cervix [Fatal]
  - Uterine mass [Unknown]
  - Cervix enlargement [Unknown]
  - Uterine enlargement [Unknown]
  - Pulmonary mass [Unknown]
  - Hepatomegaly [Unknown]
  - Hydronephrosis [Unknown]
  - Lymphadenopathy [Unknown]
  - Abdominal pain [Unknown]
  - Pelvic pain [Unknown]
  - Urinary hesitation [Unknown]
